FAERS Safety Report 9421358 (Version 1)
Quarter: 2013Q3

REPORT INFORMATION
  Report Type: Spontaneous
  Country: DE (occurrence: DE)
  Receive Date: 20130725
  Receipt Date: 20130725
  Transmission Date: 20140515
  Serious: Yes (Hospitalization)
  Sender: FDA-Public Use
  Company Number: DE-B.I. PHARMACEUTICALS,INC./RIDGEFIELD-2013-DE-01483DE

PATIENT
  Age: 82 Year
  Sex: Female
  Weight: 93 kg

DRUGS (5)
  1. PRADAXA [Suspect]
     Indication: ATRIAL FIBRILLATION
     Dosage: 220 MG
  2. PRADAXA [Suspect]
     Indication: CEREBRAL INFARCTION
  3. VERAPAMIL [Concomitant]
     Dosage: 320 NR
  4. PANTOZOL [Concomitant]
     Dosage: 40 NR
  5. IBUPROFEN [Concomitant]
     Dosage: 800 NR

REACTIONS (3)
  - Haematochezia [Recovered/Resolved]
  - Diverticulum intestinal haemorrhagic [Recovered/Resolved]
  - Blood culture positive [Recovered/Resolved]
